FAERS Safety Report 14881884 (Version 5)
Quarter: 2019Q1

REPORT INFORMATION
  Report Type: Report from Study
  Country: TW (occurrence: TW)
  Receive Date: 20180511
  Receipt Date: 20190312
  Transmission Date: 20190417
  Serious: Yes (Death, Hospitalization, Other)
  Sender: FDA-Public Use
  Company Number: TW-INCYTE CORPORATION-2018IN004378

PATIENT

DRUGS (6)
  1. ACETAMINOPHEN. [Concomitant]
     Active Substance: ACETAMINOPHEN
     Indication: PRODUCT USED FOR UNKNOWN INDICATION
     Dosage: UNK
     Route: 065
     Dates: start: 20180315, end: 20180521
  2. JAKAVI [Suspect]
     Active Substance: RUXOLITINIB
     Dosage: 30 MG, UNK
     Route: 048
     Dates: start: 20180112
  3. JAKAVI [Suspect]
     Active Substance: RUXOLITINIB
     Indication: MYELOFIBROSIS
     Dosage: 10 MG, BID
     Route: 048
     Dates: start: 20170511, end: 20170525
  4. JAKAVI [Suspect]
     Active Substance: RUXOLITINIB
     Dosage: 20 MG, QD
     Route: 048
     Dates: start: 20180813, end: 20180819
  5. JAKAVI [Suspect]
     Active Substance: RUXOLITINIB
     Dosage: 20 MG, UNK
     Route: 048
     Dates: start: 20170526, end: 20180111
  6. JAKAVI [Suspect]
     Active Substance: RUXOLITINIB
     Dosage: 20 MG, BID
     Route: 048
     Dates: end: 20180803

REACTIONS (26)
  - Feeling cold [Fatal]
  - Faeces discoloured [Recovering/Resolving]
  - Pyrexia [Fatal]
  - Middle lobe syndrome [Fatal]
  - Swelling face [Fatal]
  - Chronic gastritis [Unknown]
  - Loss of consciousness [Fatal]
  - Erythema [Fatal]
  - Cough [Fatal]
  - Red blood cell count decreased [Unknown]
  - Gastrooesophageal reflux disease [Recovering/Resolving]
  - Haemoglobin decreased [Unknown]
  - Haematocrit decreased [Unknown]
  - Multiple organ dysfunction syndrome [Fatal]
  - Occult blood positive [Recovered/Resolved]
  - Mouth ulceration [Fatal]
  - Septic shock [Fatal]
  - Neutrophil count increased [Unknown]
  - Candida infection [Unknown]
  - Platelet count increased [Unknown]
  - Pneumonia [Fatal]
  - Cellulitis [Fatal]
  - Upper gastrointestinal haemorrhage [Recovered/Resolved]
  - Haemorrhoids [Recovered/Resolved]
  - Rhinorrhoea [Fatal]
  - White blood cell count increased [Unknown]

NARRATIVE: CASE EVENT DATE: 20180301
